FAERS Safety Report 19206011 (Version 2)
Quarter: 2021Q3

REPORT INFORMATION
  Report Type: Spontaneous
  Country: US (occurrence: US)
  Receive Date: 20210503
  Receipt Date: 20210824
  Transmission Date: 20211014
  Serious: No
  Sender: FDA-Public Use
  Company Number: US-SA-2021SA144920

PATIENT
  Age: 64 Year
  Sex: Female

DRUGS (2)
  1. DUPIXENT [Suspect]
     Active Substance: DUPILUMAB
     Indication: DERMATITIS ATOPIC
     Dosage: 300 MG, QOW
     Route: 058
     Dates: end: 20210727
  2. DUPIXENT [Suspect]
     Active Substance: DUPILUMAB
     Indication: CHRONIC HEPATITIS C

REACTIONS (6)
  - Dermatitis atopic [Unknown]
  - Product use in unapproved indication [Unknown]
  - Dry skin [Unknown]
  - Product dose omission issue [Unknown]
  - Stress [Unknown]
  - Pruritus [Unknown]

NARRATIVE: CASE EVENT DATE: 20210810
